FAERS Safety Report 5332738-6 (Version None)
Quarter: 2007Q2

REPORT INFORMATION
  Report Type: 
  Country: None (occurrence: None)
  Receive Date: 20070523
  Receipt Date: 20070517
  Transmission Date: 20071010
  Serious: Yes (Other)
  Sender: FDA-Public Use
  Company Number: CA-MERCK-0705CAN00109

PATIENT
  Age: 87 Year
  Sex: Female

DRUGS (10)
  1. FOSAMAX [Suspect]
     Route: 048
     Dates: start: 20050101, end: 20060101
  2. FOSAMAX [Suspect]
     Route: 048
     Dates: start: 20070101
  3. BACLOFEN [Concomitant]
     Route: 065
  4. CLOPIDOGREL BISULFATE [Concomitant]
     Route: 065
  5. LEVOTHYROXINE SODIUM [Concomitant]
     Route: 065
  6. [THERAPY UNSPECIFIED] [Concomitant]
     Route: 065
  7. VITAMIN D (UNSPECIFIED) [Concomitant]
     Route: 065
  8. CALCIUM (UNSPECIFIED) [Concomitant]
     Route: 065
  9. ACETAMINOPHEN [Concomitant]
     Indication: PAIN
     Route: 065
  10. SENNA [Concomitant]
     Route: 065

REACTIONS (6)
  - ARTHRALGIA [None]
  - CONSTIPATION [None]
  - FLATULENCE [None]
  - MYALGIA [None]
  - NAUSEA [None]
  - PARALYSIS [None]
